FAERS Safety Report 7340879-7 (Version None)
Quarter: 2011Q1

REPORT INFORMATION
  Report Type: 
  Country: None (occurrence: None)
  Receive Date: 20110228
  Receipt Date: 20110211
  Transmission Date: 20110831
  Serious: Yes (Hospitalization)
  Sender: FDA-Public Use
  Company Number: AMAG201100009

PATIENT
  Age: 71 Year
  Sex: Male
  Weight: 78.9 kg

DRUGS (1)
  1. FERAHEME [Suspect]
     Indication: IRON DEFICIENCY ANAEMIA
     Dosage: MG, SINGLE, INTRAVENOUS
     Route: 042
     Dates: start: 20110119, end: 20110119

REACTIONS (7)
  - OXYGEN SATURATION DECREASED [None]
  - UNRESPONSIVE TO STIMULI [None]
  - URINARY INCONTINENCE [None]
  - PLEURAL EFFUSION [None]
  - SYNCOPE [None]
  - HYPERTENSION [None]
  - BLOOD GLUCOSE INCREASED [None]
